FAERS Safety Report 12887628 (Version 5)
Quarter: 2016Q4

REPORT INFORMATION
  Report Type: Spontaneous
  Country: CN (occurrence: CN)
  Receive Date: 20161026
  Receipt Date: 20161130
  Transmission Date: 20170207
  Serious: Yes (Death, Hospitalization, Other)
  Sender: FDA-Public Use
  Company Number: CN-ABBVIE-16K-035-1761366-00

PATIENT
  Age: 60 Year
  Sex: Female

DRUGS (6)
  1. METHOTREXATE. [Concomitant]
     Active Substance: METHOTREXATE
     Indication: PRODUCT USED FOR UNKNOWN INDICATION
  2. LEFLUNOMIDE. [Concomitant]
     Active Substance: LEFLUNOMIDE
     Indication: PRODUCT USED FOR UNKNOWN INDICATION
     Dosage: DURATION: MORE THAN 3 MONTHS
  3. PREDNISONE. [Concomitant]
     Active Substance: PREDNISONE
     Indication: PRODUCT USED FOR UNKNOWN INDICATION
     Dosage: DURATION: MORE THAN 3 MONTHS
  4. CELECOXIB. [Concomitant]
     Active Substance: CELECOXIB
     Indication: RHEUMATOID ARTHRITIS
     Route: 048
  5. HUMIRA [Suspect]
     Active Substance: ADALIMUMAB
     Indication: RHEUMATOID ARTHRITIS
     Route: 058
     Dates: start: 20161021, end: 20161021
  6. MELOXICAM. [Concomitant]
     Active Substance: MELOXICAM
     Indication: RHEUMATOID ARTHRITIS
     Route: 048
     Dates: start: 2013

REACTIONS (32)
  - Cough [Unknown]
  - Cholesterosis [Unknown]
  - Pupillary reflex impaired [Unknown]
  - Rheumatoid arthritis [Fatal]
  - Endocarditis [Fatal]
  - Cardiac neoplasm unspecified [Unknown]
  - Abdominal pain upper [Unknown]
  - Abdominal tenderness [Unknown]
  - Hepatic steatosis [Unknown]
  - White matter lesion [Unknown]
  - Mental impairment [Unknown]
  - Poor quality sleep [Unknown]
  - Oedema peripheral [Unknown]
  - Sinus tachycardia [Fatal]
  - Sepsis [Fatal]
  - Coma [Unknown]
  - Breath sounds abnormal [Unknown]
  - Abdominal distension [Unknown]
  - Asthenia [Unknown]
  - Sinusitis [Unknown]
  - Hypoproteinaemia [Fatal]
  - Decreased appetite [Unknown]
  - Contusion [Unknown]
  - Multiple organ dysfunction syndrome [Fatal]
  - Thrombocytopenia [Fatal]
  - Scab [Unknown]
  - Cerebral infarction [Fatal]
  - Arrhythmia [Fatal]
  - Cardiac failure [Fatal]
  - Iron metabolism disorder [Fatal]
  - Cardio-respiratory arrest [Fatal]
  - Mastoiditis [Unknown]

NARRATIVE: CASE EVENT DATE: 201610
